FAERS Safety Report 15291351 (Version 1)
Quarter: 2018Q3

REPORT INFORMATION
  Report Type: Spontaneous
  Country: US (occurrence: US)
  Receive Date: 20180817
  Receipt Date: 20180817
  Transmission Date: 20181010
  Serious: No
  Sender: FDA-Public Use
  Company Number: US-MYLANLABS-2018M1062017

PATIENT
  Sex: Female

DRUGS (1)
  1. CLONAZEPAM MYLAN [Suspect]
     Active Substance: CLONAZEPAM
     Indication: ANXIETY
     Dosage: UNK
     Dates: start: 201806

REACTIONS (5)
  - Dizziness [Unknown]
  - Palpitations [Unknown]
  - Feeling abnormal [Unknown]
  - Dry mouth [Unknown]
  - Dehydration [Unknown]

NARRATIVE: CASE EVENT DATE: 2018
